FAERS Safety Report 18642839 (Version 1)
Quarter: 2020Q4

REPORT INFORMATION
  Report Type: Spontaneous
  Country: US (occurrence: US)
  Receive Date: 20201220
  Receipt Date: 20201220
  Transmission Date: 20210114
  Serious: No
  Sender: FDA-Public Use
  Company Number: None

PATIENT
  Age: 52 Year
  Sex: Female
  Weight: 62.1 kg

DRUGS (6)
  1. VITAMIN B [Concomitant]
     Active Substance: VITAMIN B
  2. HERBAL TEAS [Concomitant]
     Active Substance: HERBALS
  3. ZINC. [Concomitant]
     Active Substance: ZINC
  4. MELOXICAM. [Suspect]
     Active Substance: MELOXICAM
     Indication: INFLAMMATION
     Route: 048
     Dates: start: 20201219, end: 20201219
  5. VITAMIN D3 [Concomitant]
     Active Substance: CHOLECALCIFEROL
  6. VITAMIN C [Concomitant]
     Active Substance: ASCORBIC ACID

REACTIONS (7)
  - Eructation [None]
  - Headache [None]
  - Abdominal distension [None]
  - Diarrhoea [None]
  - Palpitations [None]
  - Dyspepsia [None]
  - Flatulence [None]

NARRATIVE: CASE EVENT DATE: 20201219
